FAERS Safety Report 10162474 (Version 2)
Quarter: 2014Q4

REPORT INFORMATION
  Report Type: Report from Study
  Country: US (occurrence: US)
  Receive Date: 20140509
  Receipt Date: 20141008
  Transmission Date: 20150528
  Serious: Yes (Hospitalization, Other)
  Sender: FDA-Public Use
  Company Number: PHEH2014US009293

PATIENT
  Sex: Male

DRUGS (3)
  1. GLEEVEC [Suspect]
     Active Substance: IMATINIB MESYLATE
     Dosage: 300 MG, DAILY
     Route: 048
  2. GLEEVEC [Suspect]
     Active Substance: IMATINIB MESYLATE
     Indication: PRODUCT USED FOR UNKNOWN INDICATION
     Dosage: 400 MG, QD
     Route: 048
  3. GLEEVEC [Suspect]
     Active Substance: IMATINIB MESYLATE
     Dosage: 100 MG, BID
     Route: 048

REACTIONS (8)
  - Blood potassium decreased [Unknown]
  - Vomiting [Unknown]
  - General physical health deterioration [Unknown]
  - White blood cell count decreased [Unknown]
  - Dehydration [Unknown]
  - Nausea [Unknown]
  - Malaise [Unknown]
  - Weight decreased [Unknown]
